FAERS Safety Report 20025420 (Version 1)
Quarter: 2021Q4

REPORT INFORMATION
  Report Type: Report from Study
  Country: US (occurrence: US)
  Receive Date: 20211102
  Receipt Date: 20211102
  Transmission Date: 20220303
  Serious: Yes (Other)
  Sender: FDA-Public Use
  Company Number: US-JAZZ-2021-US-017660

PATIENT
  Sex: Female

DRUGS (6)
  1. XYREM [Suspect]
     Active Substance: SODIUM OXYBATE
     Indication: Narcolepsy
     Dosage: 2.25 GRAM, BID
     Route: 048
     Dates: start: 200907, end: 200907
  2. XYREM [Suspect]
     Active Substance: SODIUM OXYBATE
     Dosage: 3 GRAM, BID
     Route: 048
     Dates: start: 200907, end: 200909
  3. XYREM [Suspect]
     Active Substance: SODIUM OXYBATE
     Dosage: 4.5 GRAM, BID
     Route: 048
     Dates: start: 200909, end: 201311
  4. XYREM [Suspect]
     Active Substance: SODIUM OXYBATE
     Dosage: 4.5 GRAM, BID, AS NEEDED UP TO THREE TIMES PER WEEK
     Route: 048
     Dates: start: 201406, end: 201410
  5. XYREM [Suspect]
     Active Substance: SODIUM OXYBATE
     Dosage: 3.75 GRAM, BID, ONLY 4 NIGHTS PER WEEK, ALTERNATING WITH AMBIEN.
     Route: 048
     Dates: start: 201410
  6. RELAFEN [Suspect]
     Active Substance: NABUMETONE
     Indication: Product used for unknown indication
     Dosage: 500 MG, TABLET
     Dates: start: 20210826, end: 202109

REACTIONS (1)
  - Rectal haemorrhage [Unknown]
